FAERS Safety Report 7200462-0 (Version None)
Quarter: 2010Q4

REPORT INFORMATION
  Report Type: 
  Country: None (occurrence: None)
  Receive Date: 20101214
  Receipt Date: 20101206
  Transmission Date: 20110411
  Serious: Yes (Hospitalization)
  Sender: FDA-Public Use
  Company Number: 2010SP052257

PATIENT
  Age: 47 Year
  Sex: Female
  Weight: 63 kg

DRUGS (4)
  1. TEMOZOLOMIDE [Suspect]
     Indication: OVARIAN CANCER
     Dosage: PO
     Route: 048
     Dates: start: 20100810
  2. ABT-888 (INVESTIGATIONAL DRUG) [Suspect]
     Indication: OVARIAN CANCER
     Dosage: 40 MG;BID;PO
     Route: 048
     Dates: start: 20100810
  3. ONDANSETRON [Concomitant]
  4. PARACETAMOL [Concomitant]

REACTIONS (8)
  - ABDOMINAL PAIN [None]
  - CONSTIPATION [None]
  - DECREASED APPETITE [None]
  - DYSPNOEA [None]
  - FATIGUE [None]
  - HYPOKALAEMIA [None]
  - NAUSEA [None]
  - VOMITING [None]
